FAERS Safety Report 7968417-6 (Version None)
Quarter: 2011Q4

REPORT INFORMATION
  Report Type: 
  Country: None (occurrence: None)
  Receive Date: 20111209
  Receipt Date: 20111205
  Transmission Date: 20120403
  Serious: Yes (Hospitalization)
  Sender: FDA-Public Use
  Company Number: US-AMGEN-USASP2011064351

PATIENT
  Age: 81 Year
  Sex: Female

DRUGS (2)
  1. PREDNISONE TAB [Concomitant]
  2. PROLIA [Suspect]
     Indication: OSTEOPOROSIS
     Dosage: UNK
     Dates: start: 20110801

REACTIONS (5)
  - HYPOACUSIS [None]
  - MOBILITY DECREASED [None]
  - NECK PAIN [None]
  - ARTHRALGIA [None]
  - CHANGE OF BOWEL HABIT [None]
